FAERS Safety Report 7731323-6 (Version None)
Quarter: 2011Q3

REPORT INFORMATION
  Report Type: 
  Country: None (occurrence: None)
  Receive Date: 20110906
  Receipt Date: 20110623
  Transmission Date: 20111222
  Serious: No
  Sender: FDA-Public Use
  Company Number: US-AMGEN-USASP2011022150

PATIENT
  Age: 70 Year
  Sex: Female
  Weight: 72.109 kg

DRUGS (14)
  1. PROLIA [Suspect]
     Indication: OSTEOPOROSIS POSTMENOPAUSAL
     Dosage: 60 MG, Q6MO
     Dates: start: 20110405
  2. JANUVIA [Concomitant]
  3. LEVOTHYROXINE SODIUM [Concomitant]
  4. TRICOR [Concomitant]
  5. PROCRIT [Suspect]
     Indication: PRODUCT USED FOR UNKNOWN INDICATION
     Dosage: UNK
     Dates: start: 20110101
  6. ACTOS [Concomitant]
  7. ATENOLOL [Concomitant]
  8. FLAXSEED OIL [Concomitant]
  9. PROLIA [Suspect]
     Indication: OSTEOPOROSIS
  10. FERRETAB                           /00023505/ [Concomitant]
  11. THYROID THERAPY [Concomitant]
  12. CALCIUM WITH VITAMIN D             /00944201/ [Concomitant]
  13. DIOVAN [Concomitant]
  14. OMEPRAZOLE [Concomitant]

REACTIONS (16)
  - PARAESTHESIA ORAL [None]
  - TONGUE DISCOLOURATION [None]
  - TONGUE COATED [None]
  - GINGIVAL DISCOLOURATION [None]
  - BLOOD IRON DECREASED [None]
  - INFECTIVE GLOSSITIS [None]
  - TOOTHACHE [None]
  - ABDOMINAL PAIN UPPER [None]
  - ASTHENIA [None]
  - ABDOMINAL TENDERNESS [None]
  - ABDOMINAL DISTENSION [None]
  - MUSCULOSKELETAL CHEST PAIN [None]
  - FLATULENCE [None]
  - GASTRIC DISORDER [None]
  - DECREASED APPETITE [None]
  - GLOSSODYNIA [None]
